FAERS Safety Report 8898665 (Version 1)
Quarter: 2012Q4

REPORT INFORMATION
  Report Type: 
  Country: IT (occurrence: IT)
  Receive Date: 20121109
  Receipt Date: 20121109
  Transmission Date: 20130627
  Serious: Yes (Other)
  Sender: FDA-Public Use
  Company Number: IT-JNJFOC-20121102467

PATIENT
  Age: 61 Year
  Sex: Female

DRUGS (1)
  1. INFLIXIMAB, RECOMBINANT [Suspect]
     Indication: PSORIASIS
     Dosage: dosing frequency: initially at week 0, 2, 6 and then followed by once every 8 weeks
     Route: 042

REACTIONS (1)
  - Hypergammaglobulinaemia benign monoclonal [Recovering/Resolving]
